FAERS Safety Report 4506865-7 (Version None)
Quarter: 2004Q4

REPORT INFORMATION
  Report Type: 
  Country: None (occurrence: None)
  Receive Date: 20041122
  Receipt Date: 20041115
  Transmission Date: 20050328
  Serious: Yes (Other)
  Sender: FDA-Public Use
  Company Number: PHEH2004US12299

PATIENT
  Age: 36 Year
  Sex: Female

DRUGS (1)
  1. ZELNORM [Suspect]
     Indication: CONSTIPATION
     Dosage: 6 MG, QD-BID
     Route: 048
     Dates: start: 20040929, end: 20041110

REACTIONS (3)
  - ABDOMINAL PAIN LOWER [None]
  - LOOSE STOOLS [None]
  - RECTAL HAEMORRHAGE [None]
